FAERS Safety Report 6042479-8 (Version None)
Quarter: 2009Q1

REPORT INFORMATION
  Report Type: 
  Country: None (occurrence: None)
  Receive Date: 20090116
  Receipt Date: 20090115
  Transmission Date: 20090719
  Serious: Yes (Death)
  Sender: FDA-Public Use
  Company Number: CA-ASTRAZENECA-2009UW01377

PATIENT
  Age: 81 Year
  Sex: Female
  Weight: 62 kg

DRUGS (10)
  1. CRESTOR [Suspect]
     Dosage: 40MG EVERY ONE DAY
     Route: 048
  2. DOXEPIN HYDROCHLORIDE [Concomitant]
  3. AMPICILLIN [Concomitant]
     Route: 042
  4. CEFTRIAXONE [Concomitant]
  5. FENTANYL [Concomitant]
  6. METRONIDAZOLE [Concomitant]
  7. MIDAZOLAM HCL [Concomitant]
  8. NOREPINEPHRINE [Concomitant]
     Route: 042
  9. OCTREOTIDE ACETATE [Concomitant]
  10. PANTOPRAZOLE SODIUM [Concomitant]

REACTIONS (15)
  - ALANINE AMINOTRANSFERASE INCREASED [None]
  - ANOREXIA [None]
  - ASPARTATE AMINOTRANSFERASE INCREASED [None]
  - ASTHENIA [None]
  - BLOOD ALKALINE PHOSPHATASE INCREASED [None]
  - BLOOD CREATINE PHOSPHOKINASE INCREASED [None]
  - BLOOD CREATININE INCREASED [None]
  - BLOOD URINE PRESENT [None]
  - HEPATIC ENZYME INCREASED [None]
  - HYPOKALAEMIA [None]
  - HYPOKINESIA [None]
  - HYPOTENSION [None]
  - LEUKOCYTOSIS [None]
  - MULTI-ORGAN FAILURE [None]
  - OLIGURIA [None]
